FAERS Safety Report 7395761-6 (Version None)
Quarter: 2011Q2

REPORT INFORMATION
  Report Type: 
  Country: None (occurrence: None)
  Receive Date: 20110405
  Receipt Date: 20110322
  Transmission Date: 20111010
  Serious: Yes (Hospitalization, Other)
  Sender: FDA-Public Use
  Company Number: FR-BAYER-2011-025252

PATIENT
  Sex: Male

DRUGS (4)
  1. AVASTIN [Suspect]
     Dosage: 320 MG, ONCE EVERY TWO WEEKS
     Route: 042
     Dates: start: 20101022, end: 20110216
  2. CIFLOX [Suspect]
     Dosage: 400 MG, TID
     Route: 042
     Dates: start: 20110222, end: 20110223
  3. OFLOCET [Suspect]
     Indication: COLON CANCER METASTATIC
     Dosage: 200 MG, BID
     Route: 042
     Dates: start: 20110224
  4. ROCEPHIN [Suspect]
     Dosage: 2 G, QD
     Route: 042
     Dates: start: 20110222

REACTIONS (4)
  - THROMBOSIS [None]
  - PERIPHERAL COLDNESS [None]
  - PERIPHERAL ISCHAEMIA [None]
  - BLUE TOE SYNDROME [None]
